FAERS Safety Report 16028229 (Version 2)
Quarter: 2019Q1

REPORT INFORMATION
  Report Type: Report from Study
  Country: None (occurrence: PR)
  Receive Date: 20190304
  Receipt Date: 20190306
  Transmission Date: 20190418
  Serious: Yes (Hospitalization, Other)
  Sender: FDA-Public Use
  Company Number: PR-ABBVIE-18K-131-2485020-00

PATIENT
  Sex: Female
  Weight: 71.73 kg

DRUGS (3)
  1. HUMIRA [Suspect]
     Active Substance: ADALIMUMAB
     Route: 058
     Dates: start: 201612, end: 201704
  2. HUMIRA [Suspect]
     Active Substance: ADALIMUMAB
     Indication: COLITIS ULCERATIVE
     Route: 058
     Dates: start: 20140820
  3. HUMIRA [Suspect]
     Active Substance: ADALIMUMAB
     Route: 058
     Dates: start: 20181015

REACTIONS (4)
  - Endocarditis [Recovered/Resolved]
  - Anaemia [Recovered/Resolved]
  - Pulmonary embolism [Recovered/Resolved]
  - Myocardial infarction [Recovered/Resolved]
